FAERS Safety Report 16269390 (Version 1)
Quarter: 2019Q2

REPORT INFORMATION
  Report Type: Spontaneous
  Country: US (occurrence: US)
  Receive Date: 20190503
  Receipt Date: 20190503
  Transmission Date: 20190711
  Serious: No
  Sender: FDA-Public Use
  Company Number: US-TEVA-2019-US-1044601

PATIENT
  Sex: Female

DRUGS (1)
  1. MICON (MICONAZOLE) [Suspect]
     Active Substance: MICONAZOLE
     Indication: VULVOVAGINAL MYCOTIC INFECTION

REACTIONS (3)
  - Vaginal discharge [Unknown]
  - Wrong technique in product usage process [Unknown]
  - Vulvovaginal mycotic infection [Unknown]
